FAERS Safety Report 4658764-8 (Version None)
Quarter: 2005Q2

REPORT INFORMATION
  Report Type: 
  Country: None (occurrence: None)
  Receive Date: 20050509
  Receipt Date: 20050426
  Transmission Date: 20051028
  Serious: Yes (Other)
  Sender: FDA-Public Use
  Company Number: 2005EU000722

PATIENT
  Sex: Male

DRUGS (4)
  1. PROTOPIC [Suspect]
     Indication: DERMATITIS ATOPIC
     Dosage: 0.10%, /D, TOPICAL
     Route: 061
     Dates: start: 20040701, end: 20050301
  2. CLAVULANIC ACID (CLAVULANIC ACID) [Concomitant]
  3. AMOXICILLIN [Concomitant]
  4. ASTROMICIN (ASTROMICIN) [Concomitant]

REACTIONS (1)
  - PERIPHERAL T-CELL LYMPHOMA UNSPECIFIED [None]
